FAERS Safety Report 8449211 (Version 4)
Quarter: 2014Q4

REPORT INFORMATION
  Report Type: Report from Study
  Country: IN (occurrence: IN)
  Receive Date: 20120308
  Receipt Date: 20141126
  Transmission Date: 20150529
  Serious: Yes (Hospitalization, Disabling)
  Sender: FDA-Public Use
  Company Number: PHHO2012IN003219

PATIENT
  Age: 28 Year
  Sex: Male
  Weight: 68.5 kg

DRUGS (14)
  1. PRAZOPRESS//PRAZOSIN [Concomitant]
     Indication: HYPERTENSION
     Dosage: 10 MG, BID
     Route: 048
     Dates: start: 20110207
  2. PREDNISONE. [Suspect]
     Active Substance: PREDNISONE
  3. WYSOLONE [Concomitant]
     Indication: PROPHYLAXIS
     Dosage: UNK
     Route: 048
     Dates: start: 20110207, end: 20120222
  4. SEPTRAN [Concomitant]
     Indication: PROPHYLAXIS
     Dosage: 480 MG, QD
     Route: 048
     Dates: start: 20110207
  5. BETALOC [Concomitant]
     Active Substance: METOPROLOL TARTRATE
     Indication: HYPERTENSION
     Dosage: 25 MG, BID
     Route: 048
     Dates: start: 20120222
  6. CERTICAN [Suspect]
     Active Substance: EVEROLIMUS
     Indication: RENAL TRANSPLANT
     Dosage: 0.75 MG, BID
     Route: 048
     Dates: start: 20110419, end: 20120223
  7. WYSOLONE [Concomitant]
     Dosage: 2.5 MG, QD
     Route: 048
  8. ARKAMIN [Concomitant]
     Indication: HYPERTENSION
     Dosage: 0.1 UG, 1-1-2
     Dates: start: 20110207
  9. WYSOLONE [Concomitant]
     Dosage: 40 MG, QD
     Route: 048
  10. RANTAC [Concomitant]
     Active Substance: RANITIDINE HYDROCHLORIDE
     Indication: ANTACID THERAPY
     Dosage: 150 MG, QD
     Route: 048
     Dates: start: 20110207
  11. WYSOLONE [Concomitant]
     Dosage: 10 MG, QD
     Route: 048
     Dates: end: 20121115
  12. MYFORTIC [Concomitant]
     Active Substance: MYCOPHENOLATE SODIUM
     Indication: RENAL TRANSPLANT
     Dosage: 360 MG, BID
     Route: 048
     Dates: start: 20110207, end: 20120223
  13. CARDACE [Concomitant]
     Active Substance: RAMIPRIL
     Indication: HYPERTENSION
     Dosage: 2.5 MG, QD
     Route: 048
     Dates: start: 20121115
  14. NEORAL [Suspect]
     Active Substance: CYCLOSPORINE
     Indication: RENAL TRANSPLANT
     Dosage: 150 MG, BID
     Route: 048
     Dates: start: 20110207

REACTIONS (2)
  - Osteonecrosis [Not Recovered/Not Resolved]
  - Myopathy [Recovering/Resolving]

NARRATIVE: CASE EVENT DATE: 20120222
